FAERS Safety Report 7799371-8 (Version None)
Quarter: 2011Q4

REPORT INFORMATION
  Report Type: 
  Country: None (occurrence: None)
  Receive Date: 20111006
  Receipt Date: 20110916
  Transmission Date: 20120403
  Serious: No
  Sender: FDA-Public Use
  Company Number: US-B.I. PHARMACEUTICALS,INC./RIDGEFIELD-2011-BP-22372BP

PATIENT
  Sex: Male

DRUGS (8)
  1. AVODART [Concomitant]
     Indication: PROSTATIC DISORDER
     Dosage: 0.5 MG
     Route: 048
     Dates: start: 20060101
  2. EXELON [Concomitant]
     Indication: MEMORY IMPAIRMENT
     Route: 062
     Dates: start: 20110601
  3. VITAMIN B-12 [Concomitant]
     Indication: MEMORY IMPAIRMENT
     Dosage: 2500 MCG
     Route: 048
     Dates: start: 20110601
  4. REQUIP [Concomitant]
     Indication: RESTLESS LEGS SYNDROME
     Dosage: 6 MG
     Route: 048
     Dates: start: 20060101
  5. PRADAXA [Suspect]
     Indication: ATRIAL FIBRILLATION
     Dosage: 300 MG
     Route: 048
     Dates: start: 20101101
  6. COREG [Concomitant]
     Indication: HYPERTENSION
     Dosage: 50 MG
     Route: 048
     Dates: start: 20060101
  7. VITAMIN B1 TAB [Concomitant]
     Indication: MEMORY IMPAIRMENT
     Dosage: 100 MG
     Route: 048
     Dates: start: 20110601
  8. CLONAZEPAM [Concomitant]
     Indication: ANXIETY
     Dosage: 0.5 MG
     Route: 048
     Dates: start: 20110601

REACTIONS (5)
  - ANXIETY [None]
  - HAEMATURIA [None]
  - MEMORY IMPAIRMENT [None]
  - CHOKING [None]
  - RASH MACULAR [None]
